FAERS Safety Report 5419504-8 (Version None)
Quarter: 2007Q3

REPORT INFORMATION
  Report Type: 
  Country: None (occurrence: None)
  Receive Date: 20070817
  Receipt Date: 20070817
  Transmission Date: 20080115
  Serious: Yes (Death)
  Sender: FDA-Public Use
  Company Number: None

PATIENT
  Sex: Female

DRUGS (2)
  1. TOPOTECAN [Suspect]
     Indication: SMALL CELL CARCINOMA
     Dosage: 3 MG/M2 D1,8,15 Q 28 DAYS IV
     Route: 042
     Dates: start: 20070430, end: 20070605
  2. VELCADE [Suspect]
     Dosage: 1.6 MG/M2 D 1,8,15 Q 28 DAYS IV
     Route: 042
     Dates: start: 20070430, end: 20070605

REACTIONS (1)
  - BLOOD GLUCOSE INCREASED [None]
